FAERS Safety Report 9838386 (Version 2)
Quarter: 2015Q3

REPORT INFORMATION
  Report Type: Spontaneous
  Country: US (occurrence: US)
  Receive Date: 20140123
  Receipt Date: 20150721
  Transmission Date: 20151125
  Serious: No
  Sender: FDA-Public Use
  Company Number: US-GILEAD-2011-0045890

PATIENT
  Age: 16 Year
  Sex: Female

DRUGS (1)
  1. CAYSTON [Suspect]
     Active Substance: AZTREONAM
     Indication: PRODUCT USED FOR UNKNOWN INDICATION
     Dosage: UNK
     Route: 048
     Dates: start: 20111012

REACTIONS (3)
  - Dyspnoea [Unknown]
  - Chest pain [Unknown]
  - Abdominal pain [Unknown]

NARRATIVE: CASE EVENT DATE: 20111021
